FAERS Safety Report 15602462 (Version 1)
Quarter: 2018Q4

REPORT INFORMATION
  Report Type: Spontaneous
  Country: US (occurrence: US)
  Receive Date: 20181107
  Receipt Date: 20181107
  Transmission Date: 20190205
  Serious: Yes (Life-Threatening, Hospitalization)
  Sender: FDA-Public Use
  Company Number: None

PATIENT
  Sex: Male
  Weight: 16 kg

DRUGS (1)
  1. ECULIZUMAB, 10 MG/ML MG [Suspect]
     Active Substance: ECULIZUMAB
     Route: 042

REACTIONS (1)
  - Meningococcal infection [None]
